FAERS Safety Report 17988900 (Version 1)
Quarter: 2020Q3

REPORT INFORMATION
  Report Type: Spontaneous
  Country: US (occurrence: US)
  Receive Date: 20200707
  Receipt Date: 20200707
  Transmission Date: 20201103
  Serious: No
  Sender: FDA-Public Use
  Company Number: US-SA-2020SA171578

PATIENT

DRUGS (2)
  1. BYDUREON [Concomitant]
     Active Substance: EXENATIDE
     Dosage: 2 MG, QW
     Route: 065
  2. LANTUS SOLOSTAR [Suspect]
     Active Substance: INSULIN GLARGINE
     Indication: TYPE 2 DIABETES MELLITUS
     Dosage: 51 IU, QD
     Route: 065

REACTIONS (2)
  - Underweight [Unknown]
  - Product use issue [Unknown]
